FAERS Safety Report 21582034 (Version 1)
Quarter: 2022Q4

REPORT INFORMATION
  Report Type: Report from Study
  Country: US (occurrence: US)
  Receive Date: 20221111
  Receipt Date: 20221111
  Transmission Date: 20230113
  Serious: Yes (Hospitalization, Other)
  Sender: FDA-Public Use
  Company Number: US-BRISTOL-MYERS SQUIBB COMPANY-2022-133900

PATIENT
  Age: 72 Year
  Sex: Male
  Weight: 72.574 kg

DRUGS (1)
  1. POMALYST [Suspect]
     Active Substance: POMALIDOMIDE
     Indication: Plasma cell myeloma
     Dosage: TAKE 1 CAPSULE DAILY FOR 21 DAYS, THEN TAKE 7 DAYS OFF, SWALLOW WHOLE WITH WATER
     Route: 048

REACTIONS (1)
  - Arthropathy [Recovering/Resolving]
